FAERS Safety Report 9279679 (Version 1)
Quarter: 2013Q2

REPORT INFORMATION
  Report Type: Spontaneous
  Country: US (occurrence: US)
  Receive Date: 20130509
  Receipt Date: 20130509
  Transmission Date: 20140414
  Serious: No
  Sender: FDA-Public Use
  Company Number: US-BIOGENIDEC-2013BI040077

PATIENT
  Sex: Female

DRUGS (1)
  1. TYSABRI [Suspect]
     Indication: MULTIPLE SCLEROSIS
     Route: 042
     Dates: start: 20120620

REACTIONS (7)
  - Muscle spasms [Recovered/Resolved]
  - Bone pain [Recovered/Resolved]
  - Cognitive disorder [Recovered/Resolved]
  - Pleuritic pain [Not Recovered/Not Resolved]
  - Fatigue [Recovered/Resolved]
  - Chest pain [Not Recovered/Not Resolved]
  - Asthenia [Recovered/Resolved]
